FAERS Safety Report 8792144 (Version 1)
Quarter: 2012Q4

REPORT INFORMATION
  Report Type: 
  Country: US (occurrence: US)
  Receive Date: 20120918
  Receipt Date: 20120918
  Transmission Date: 20130627
  Serious: No
  Sender: FDA-Public Use
  Company Number: US-B.I. PHARMACEUTICALS,INC./RIDGEFIELD-2012-BP-22493BP

PATIENT
  Sex: Female
  Weight: 77 kg

DRUGS (4)
  1. PRADAXA [Suspect]
     Indication: ATRIAL FLUTTER
     Dosage: 300 mg
     Route: 048
     Dates: start: 201109, end: 201204
  2. PRADAXA [Suspect]
     Dosage: 150 mg
     Route: 048
     Dates: start: 201204
  3. BYSTOLIC [Concomitant]
     Indication: ATRIAL FLUTTER
     Dosage: 5 mg
     Route: 048
     Dates: start: 201205
  4. CARTIA XT [Concomitant]
     Indication: ATRIAL FLUTTER
     Dosage: 360 mg
     Route: 048

REACTIONS (2)
  - Cataract [Not Recovered/Not Resolved]
  - Tooth abscess [Recovered/Resolved]
